FAERS Safety Report 9086616 (Version 1)
Quarter: 2013Q1

REPORT INFORMATION
  Report Type: Other
  Country: IT (occurrence: IT)
  Receive Date: 20130131
  Receipt Date: 20130131
  Transmission Date: 20140127
  Serious: Yes (Other)
  Sender: FDA-Public Use
  Company Number: IT-WATSON-2013-01262

PATIENT
  Age: 66 Year
  Sex: Male

DRUGS (3)
  1. CARVEDILOL [Suspect]
     Indication: INTENTIONAL SELF-INJURY
     Dosage: 212.5 MG TOTAL (34 TABLETS)
     Route: 048
     Dates: start: 20121001, end: 20121001
  2. ENAPREN [Suspect]
     Indication: INTENTIONAL SELF-INJURY
     Dosage: 30 DF TOTAL OF 5 MG TABLETS
     Route: 048
     Dates: start: 20121001, end: 20121001
  3. COUMADIN [Suspect]
     Indication: INTENTIONAL SELF-INJURY
     Dosage: 10 DF, TOTAL OF 5 MG TABLETS
     Route: 048
     Dates: start: 20121001, end: 20121001

REACTIONS (2)
  - Somnolence [Unknown]
  - Intentional self-injury [Unknown]
